FAERS Safety Report 6099027-6 (Version None)
Quarter: 2009Q1

REPORT INFORMATION
  Report Type: 
  Country: None (occurrence: None)
  Receive Date: 20090302
  Receipt Date: 20090223
  Transmission Date: 20090719
  Serious: Yes (Other)
  Sender: FDA-Public Use
  Company Number: US-ASTRAZENECA-2009UW05084

PATIENT
  Age: 83 Year
  Sex: Female

DRUGS (1)
  1. SEROQUEL [Suspect]
     Route: 048

REACTIONS (5)
  - DIABETES MELLITUS [None]
  - FATIGUE [None]
  - HYPOAESTHESIA [None]
  - OVERDOSE [None]
  - SUICIDAL IDEATION [None]
